FAERS Safety Report 6626604-3 (Version None)
Quarter: 2010Q1

REPORT INFORMATION
  Report Type: 
  Country: None (occurrence: None)
  Receive Date: 20100309
  Receipt Date: 20100309
  Transmission Date: 20100710
  Serious: Yes (Life-Threatening, Hospitalization)
  Sender: FDA-Public Use
  Company Number: None

PATIENT
  Age: 72 Year
  Sex: Female
  Weight: 69 kg

DRUGS (1)
  1. METHYLENE BLUE 10MG/ML AMERICAN REGENT LABS [Suspect]
     Dosage: 5MG/KG ONCE
     Dates: start: 20100212, end: 20100212

REACTIONS (1)
  - SEROTONIN SYNDROME [None]
